FAERS Safety Report 5679744-X (Version None)
Quarter: 2008Q1

REPORT INFORMATION
  Report Type: 
  Country: None (occurrence: None)
  Receive Date: 20080321
  Receipt Date: 20080312
  Transmission Date: 20080703
  Serious: Yes (Death)
  Sender: FDA-Public Use
  Company Number: GXKR2008JP02611

PATIENT
  Sex: Male

DRUGS (3)
  1. RIFAMPICIN [Suspect]
     Indication: MYCOBACTERIUM AVIUM COMPLEX INFECTION
  2. CLARITHROMYCIN [Concomitant]
  3. EBUTOL (ETHAMBUTOL) [Concomitant]

REACTIONS (1)
  - DEATH [None]
